FAERS Safety Report 9612031 (Version 1)
Quarter: 2013Q4

REPORT INFORMATION
  Report Type: Spontaneous
  Country: US (occurrence: US)
  Receive Date: 20131010
  Receipt Date: 20131010
  Transmission Date: 20140711
  Serious: No
  Sender: FDA-Public Use
  Company Number: US-BAYER-2013-122292

PATIENT
  Age: 88 Year
  Sex: Male
  Weight: 72.56 kg

DRUGS (6)
  1. ALEVE CAPLET [Suspect]
     Indication: BACK PAIN
     Dosage: 1 DF, TID
     Route: 048
     Dates: start: 201302, end: 201302
  2. ALEVE CAPLET [Suspect]
     Indication: BACK PAIN
     Dosage: 1 DF, BID
     Route: 048
     Dates: start: 201303
  3. LISINOPRIL [Concomitant]
  4. ZOLPIDEM [Concomitant]
  5. TRAZODONE [Concomitant]
  6. PRIMIDONE [Concomitant]

REACTIONS (2)
  - Incorrect drug administration duration [None]
  - Faeces discoloured [Recovered/Resolved]
